FAERS Safety Report 7578700-4 (Version None)
Quarter: 2011Q2

REPORT INFORMATION
  Report Type: 
  Country: None (occurrence: None)
  Receive Date: 20110628
  Receipt Date: 20100721
  Transmission Date: 20111010
  Serious: No
  Sender: FDA-Public Use
  Company Number: US-PFIZER INC-2010092146

PATIENT
  Sex: Female
  Weight: 91 kg

DRUGS (17)
  1. METFORMIN [Concomitant]
     Dosage: UNK
  2. ARTHROTEC [Concomitant]
     Dosage: UNK
  3. LIDODERM [Concomitant]
     Dosage: UNK
  4. CENTRUM [Concomitant]
     Dosage: UNK
  5. CALTRATE + D [Concomitant]
     Dosage: UNK
  6. ZETIA [Concomitant]
     Dosage: UNK
  7. FUROSEMIDE [Concomitant]
     Dosage: UNK
  8. LOTREL [Concomitant]
     Dosage: UNK
  9. CHLOROPHYLLIN SODIUM COPPER COMPLEX [Concomitant]
     Dosage: UNK
  10. DETROL LA [Suspect]
     Indication: HYPERTONIC BLADDER
     Dosage: 2 MG, UNK
     Route: 048
     Dates: start: 20100301, end: 20100101
  11. ACETYLSALICYLIC ACID [Concomitant]
     Dosage: UNK
  12. PREMARIN [Concomitant]
     Dosage: UNK
  13. POTASSIUM [Concomitant]
     Dosage: UNK
  14. BACLOFEN [Concomitant]
     Dosage: UNK
  15. SYNTHROID [Concomitant]
     Dosage: UNK
  16. FISH OIL [Concomitant]
     Dosage: UNK
  17. VITAMIN B-12 [Concomitant]
     Dosage: UNK

REACTIONS (2)
  - NOCTURIA [None]
  - DRUG INEFFECTIVE [None]
